FAERS Safety Report 7832500-6 (Version None)
Quarter: 2011Q4

REPORT INFORMATION
  Report Type: 
  Country: None (occurrence: None)
  Receive Date: 20111024
  Receipt Date: 20111010
  Transmission Date: 20120403
  Serious: Yes (Other)
  Sender: FDA-Public Use
  Company Number: ZA-RANBAXY-2011R5-49558

PATIENT

DRUGS (4)
  1. AMOXICILLIN AND CLAVULANATE POTASSIUM [Suspect]
     Indication: PRODUCT USED FOR UNKNOWN INDICATION
     Dosage: ONE TABLET, TID
     Route: 048
     Dates: start: 20111006, end: 20111009
  2. PREDNISONE [Concomitant]
     Indication: PRODUCT USED FOR UNKNOWN INDICATION
     Dosage: 5 MG, UNK
     Route: 065
  3. FLEMEZE [Concomitant]
     Indication: PRODUCT USED FOR UNKNOWN INDICATION
     Dosage: 200 ML, UNK
     Route: 065
  4. SYMBICORD [Concomitant]
     Indication: PRODUCT USED FOR UNKNOWN INDICATION
     Dosage: 160/4.5MCG 120DOSES
     Route: 065

REACTIONS (6)
  - ANORECTAL DISORDER [None]
  - FAECAL INCONTINENCE [None]
  - URINARY INCONTINENCE [None]
  - DEHYDRATION [None]
  - ABDOMINAL PAIN UPPER [None]
  - PAIN [None]
